FAERS Safety Report 11177042 (Version 3)
Quarter: 2015Q3

REPORT INFORMATION
  Report Type: Spontaneous
  Country: US (occurrence: US)
  Receive Date: 20150610
  Receipt Date: 20150813
  Transmission Date: 20151125
  Serious: Yes (Hospitalization, Other)
  Sender: FDA-Public Use
  Company Number: US-AMGEN-USASP2015039465

PATIENT
  Age: 74 Year
  Sex: Male
  Weight: 152.38 kg

DRUGS (17)
  1. LANTUS [Concomitant]
     Active Substance: INSULIN GLARGINE
     Indication: TYPE 2 DIABETES MELLITUS
     Dosage: 100 UNITS/ML, QD AT BED TIME
     Route: 058
  2. COZAAR [Concomitant]
     Active Substance: LOSARTAN POTASSIUM
     Dosage: 50 MG, QD AT BED TIME
     Route: 048
  3. TORSEMIDE. [Concomitant]
     Active Substance: TORSEMIDE
     Dosage: 100 MG, QD
     Route: 048
  4. VITAMIN D                          /00107901/ [Concomitant]
     Active Substance: ERGOCALCIFEROL
     Dosage: 5000 UNIT, QWK
     Route: 048
  5. COUMADIN [Concomitant]
     Active Substance: WARFARIN SODIUM
     Indication: ATRIAL FIBRILLATION
     Dosage: 10 MG, QWK
     Route: 048
  6. XGEVA [Suspect]
     Active Substance: DENOSUMAB
     Indication: METASTASES TO BONE
     Dosage: 120 MG, UNK
     Route: 058
     Dates: start: 20141223
  7. LUPRON [Concomitant]
     Active Substance: LEUPROLIDE ACETATE
     Indication: PROSTATE CANCER
     Dosage: UNK UNK, Q6MO
  8. INSULIN                            /00646001/ [Concomitant]
     Active Substance: INSULIN NOS
     Indication: TYPE 2 DIABETES MELLITUS
  9. WARFARIN [Concomitant]
     Active Substance: WARFARIN
     Dosage: 7.5 MG, QD EXCEPT SUNDAY
     Route: 048
  10. XGEVA [Suspect]
     Active Substance: DENOSUMAB
     Indication: PROSTATE CANCER METASTATIC
  11. METFORMIN HCL [Concomitant]
     Active Substance: METFORMIN HYDROCHLORIDE
     Dosage: 500 MG, TID
     Route: 048
  12. GLIPIZIDE. [Concomitant]
     Active Substance: GLIPIZIDE
     Indication: TYPE 2 DIABETES MELLITUS
     Dosage: 5 MG, BID
     Route: 048
  13. RAPAFLO [Concomitant]
     Active Substance: SILODOSIN
     Dosage: 8 MG, QD
     Route: 048
  14. LIPITOR [Concomitant]
     Active Substance: ATORVASTATIN CALCIUM
     Dosage: 40 MG, QD
     Route: 048
  15. NORVASC [Concomitant]
     Active Substance: AMLODIPINE BESYLATE
  16. TOPROL XL [Concomitant]
     Active Substance: METOPROLOL SUCCINATE
     Dosage: 50 MG, QD AT BED TIME
     Route: 048
  17. OXYCODONE AND ACETAMINOPHEN [Concomitant]
     Active Substance: ACETAMINOPHEN\OXYCODONE\OXYCODONE HYDROCHLORIDE
     Dosage: 5 MG/325MG, Q6H AS NEEDED
     Route: 048

REACTIONS (38)
  - Vascular dementia [Unknown]
  - Haemorrhage intracranial [Unknown]
  - Immobile [Unknown]
  - Cerebral atrophy [Unknown]
  - Nocturia [Unknown]
  - Malaise [Unknown]
  - Contusion [Unknown]
  - International normalised ratio increased [Unknown]
  - Erythema [Unknown]
  - Tremor [Unknown]
  - Metastases to bone [Unknown]
  - Peripheral swelling [Unknown]
  - Mastoiditis [Unknown]
  - Memory impairment [Unknown]
  - Dehydration [Unknown]
  - Diarrhoea [Unknown]
  - Bundle branch block right [Unknown]
  - Metabolic disorder [Unknown]
  - Oedema due to cardiac disease [Unknown]
  - Spinal column stenosis [Unknown]
  - General physical condition abnormal [Unknown]
  - Confusional state [Unknown]
  - Brain cancer metastatic [Unknown]
  - Decreased appetite [Unknown]
  - Impaired work ability [Unknown]
  - Eye contusion [Unknown]
  - Acute kidney injury [Unknown]
  - Arthralgia [Unknown]
  - Electrocardiogram ST-T change [Unknown]
  - Asthenia [Unknown]
  - Somnolence [Unknown]
  - Bursitis [Unknown]
  - Nausea [Unknown]
  - Cancer pain [Unknown]
  - Hypocalcaemia [Recovered/Resolved]
  - Back pain [Unknown]
  - Joint effusion [Unknown]
  - Anaemia [Unknown]

NARRATIVE: CASE EVENT DATE: 20150102
